FAERS Safety Report 11661045 (Version 5)
Quarter: 2017Q1

REPORT INFORMATION
  Report Type: Report from Study
  Country: BR (occurrence: BR)
  Receive Date: 20151026
  Receipt Date: 20170214
  Transmission Date: 20170428
  Serious: Yes (Hospitalization, Other)
  Sender: FDA-Public Use
  Company Number: BR-GLAXOSMITHKLINE-BR2015GSK135617

PATIENT
  Age: 43 Year
  Sex: Female
  Weight: 56 kg

DRUGS (4)
  1. AZATHIOPRINE. [Suspect]
     Active Substance: AZATHIOPRINE
     Indication: PRODUCT USED FOR UNKNOWN INDICATION
     Dosage: UNK
  2. BELIMUMAB [Suspect]
     Active Substance: BELIMUMAB
     Indication: SYSTEMIC LUPUS ERYTHEMATOSUS
     Dosage: UNK
     Dates: start: 20150220, end: 20150814
  3. BELIMUMAB [Suspect]
     Active Substance: BELIMUMAB
     Dosage: UNK
     Dates: start: 20161021
  4. BELIMUMAB [Suspect]
     Active Substance: BELIMUMAB
     Dosage: UNK
     Dates: start: 20161118

REACTIONS (9)
  - Uterine haemorrhage [Unknown]
  - Drug ineffective [Unknown]
  - Drug dose omission [Unknown]
  - Hysterectomy [Unknown]
  - Hepatic cirrhosis [Unknown]
  - Circumstance or information capable of leading to medication error [Not Recovered/Not Resolved]
  - Coagulopathy [Unknown]
  - Herpes zoster [Unknown]
  - Weight decreased [Unknown]

NARRATIVE: CASE EVENT DATE: 201507
